FAERS Safety Report 19941501 (Version 1)
Quarter: 2021Q4

REPORT INFORMATION
  Report Type: Spontaneous
  Country: DE (occurrence: DE)
  Receive Date: 20211011
  Receipt Date: 20211011
  Transmission Date: 20220303
  Serious: Yes (Other)
  Sender: FDA-Public Use
  Company Number: DE-TEVA-2021-DE-1920071

PATIENT
  Age: 53 Year
  Sex: Male

DRUGS (6)
  1. PACLITAXEL [Suspect]
     Active Substance: PACLITAXEL
     Indication: Metastases to lymph nodes
     Dosage: UNK
     Route: 065
  2. PACLITAXEL [Suspect]
     Active Substance: PACLITAXEL
     Indication: Metastatic malignant melanoma
  3. NIVOLUMAB [Suspect]
     Active Substance: NIVOLUMAB
     Indication: Metastases to lymph nodes
     Dosage: UNK
     Route: 065
  4. INTERFERON [Suspect]
     Active Substance: INTERFERON
     Indication: Metastases to lymph nodes
     Dosage: UNK
     Route: 065
  5. CARBOPLATIN [Suspect]
     Active Substance: CARBOPLATIN
     Indication: Metastases to lymph nodes
     Dosage: UNK
     Route: 065
  6. CARBOPLATIN [Suspect]
     Active Substance: CARBOPLATIN
     Indication: Metastatic malignant melanoma

REACTIONS (3)
  - Erysipelas [Unknown]
  - Drug ineffective for unapproved indication [Unknown]
  - Off label use [Unknown]
